FAERS Safety Report 15743360 (Version 2)
Quarter: 2018Q4

REPORT INFORMATION
  Report Type: Report from Study
  Country: CA (occurrence: CA)
  Receive Date: 20181220
  Receipt Date: 20181231
  Transmission Date: 20190205
  Serious: Yes (Hospitalization)
  Sender: FDA-Public Use
  Company Number: CA-BIOGEN-2018BI00671890

PATIENT
  Age: 13 Year
  Sex: Female

DRUGS (10)
  1. TECFIDERA [Suspect]
     Active Substance: DIMETHYL FUMARATE
     Dosage: STARTING TITRATION DOSE AS PRESCRIBED BY NEUROLOGIST
     Route: 048
     Dates: start: 20171214, end: 20171220
  2. TECFIDERA [Suspect]
     Active Substance: DIMETHYL FUMARATE
     Dosage: STARTING TITRATION DOSE AS PRESCRIBED BY NEUROLOGIST
     Route: 048
     Dates: start: 20171219, end: 20171225
  3. TECFIDERA [Suspect]
     Active Substance: DIMETHYL FUMARATE
     Dosage: STARTING TITRATION DOSE AS PRESCRIBED BY NEUROLOGIST
     Route: 048
     Dates: start: 20171228, end: 20180103
  4. TECFIDERA [Suspect]
     Active Substance: DIMETHYL FUMARATE
     Dosage: MAINTENANCE DOSE
     Route: 048
     Dates: start: 20180104, end: 20181214
  5. TECFIDERA [Suspect]
     Active Substance: DIMETHYL FUMARATE
     Indication: MULTIPLE SCLEROSIS
     Dosage: STARTING TITRATION DOSE AS PRESCRIBED BY NEUROLOGIST
     Route: 048
     Dates: start: 20171204, end: 20171211
  6. TECFIDERA [Suspect]
     Active Substance: DIMETHYL FUMARATE
     Dosage: STARTING TITRATION DOSE AS PRESCRIBED BY NEUROLOGIST
     Route: 048
     Dates: start: 20171212, end: 20171218
  7. TECFIDERA [Suspect]
     Active Substance: DIMETHYL FUMARATE
     Dosage: STARTING TITRATION DOSE AS PRESCRIBED BY NEUROLOGIST
     Route: 048
     Dates: start: 20171221, end: 20171227
  8. TECFIDERA [Suspect]
     Active Substance: DIMETHYL FUMARATE
     Dosage: STARTING TITRATION DOSE AS PRESCRIBED BY NEUROLOGIST
     Route: 048
     Dates: start: 20171219, end: 20171225
  9. TECFIDERA [Suspect]
     Active Substance: DIMETHYL FUMARATE
     Dosage: STARTING TITRATION DOSE AS PRESCRIBED BY NEUROLOGIST
     Route: 048
     Dates: start: 20171228, end: 20180103
  10. TECFIDERA [Suspect]
     Active Substance: DIMETHYL FUMARATE
     Dosage: MAINTENANCE DOSE
     Route: 048
     Dates: start: 20171226

REACTIONS (10)
  - Weight increased [Unknown]
  - Abdominal pain upper [Not Recovered/Not Resolved]
  - Hypoaesthesia [Not Recovered/Not Resolved]
  - Hypoaesthesia [Recovered/Resolved]
  - Off label use [Not Recovered/Not Resolved]
  - Prescribed underdose [Recovered/Resolved]
  - Central nervous system lesion [Unknown]
  - Visual impairment [Recovered/Resolved]
  - Hypoaesthesia oral [Not Recovered/Not Resolved]
  - Flushing [Recovered/Resolved]

NARRATIVE: CASE EVENT DATE: 20171204
